FAERS Safety Report 4617294-X (Version None)
Quarter: 2005Q1

REPORT INFORMATION
  Report Type: 
  Country: None (occurrence: None)
  Receive Date: 20050323
  Receipt Date: 20041214
  Transmission Date: 20050727
  Serious: Yes (Hospitalization)
  Sender: FDA-Public Use
  Company Number: DE-MERCK-0412DEU00128

PATIENT
  Age: 54 Year
  Sex: Female

DRUGS (2)
  1. VIOXX [Suspect]
     Indication: POLYMYALGIA RHEUMATICA
     Route: 048
     Dates: start: 20000201
  2. PHENPROCOUMON [Concomitant]
     Route: 048

REACTIONS (6)
  - CEREBROVASCULAR ACCIDENT [None]
  - DEAFNESS UNILATERAL [None]
  - DIABETES MELLITUS INADEQUATE CONTROL [None]
  - GASTRITIS [None]
  - HEPATOMEGALY [None]
  - VESTIBULAR NEURONITIS [None]
